FAERS Safety Report 11782436 (Version 2)
Quarter: 2016Q1

REPORT INFORMATION
  Report Type: Spontaneous
  Country: AU (occurrence: AU)
  Receive Date: 20151127
  Receipt Date: 20160203
  Transmission Date: 20160525
  Serious: Yes (Hospitalization, Other)
  Sender: FDA-Public Use
  Company Number: AU-PFIZER INC-2015390047

PATIENT
  Age: 77 Year
  Sex: Male

DRUGS (5)
  1. ALPHAMOX [Concomitant]
     Dosage: 500 MG, 3X/DAY
     Dates: start: 201506, end: 201508
  2. METOPROLOL. [Concomitant]
     Active Substance: METOPROLOL
     Dosage: UNK, 2X/DAY
     Dates: start: 2008
  3. LYRICA [Suspect]
     Active Substance: PREGABALIN
     Indication: NERVE COMPRESSION
     Dosage: 75 MG, 2X/DAY
     Dates: start: 201506, end: 201508
  4. PANADOL [Concomitant]
     Active Substance: ACETAMINOPHEN
     Dosage: 665 MG (2 TABS, 3X/DAY)
     Dates: start: 201506, end: 201508
  5. ATORVASTATIN [Concomitant]
     Active Substance: ATORVASTATIN
     Dosage: 80 MG, 1X/DAY
     Dates: start: 2008

REACTIONS (4)
  - Skin lesion [Recovered/Resolved]
  - Pain in extremity [Recovered/Resolved]
  - Skin discolouration [Not Recovered/Not Resolved]
  - Skin infection [Recovered/Resolved]
